FAERS Safety Report 11196547 (Version 2)
Quarter: 2015Q2

REPORT INFORMATION
  Report Type: Spontaneous
  Country: US (occurrence: US)
  Receive Date: 20150617
  Receipt Date: 20150629
  Transmission Date: 20150821
  Serious: Yes (Death, Hospitalization, Other)
  Sender: FDA-Public Use
  Company Number: US-INCYTE CORPORATION-2015IN002467

PATIENT
  Sex: Male

DRUGS (15)
  1. FENTANYL. [Concomitant]
     Active Substance: FENTANYL
     Dosage: 12 MCG Q 3 DAYS
     Dates: start: 20150516
  2. PROTONIX [Concomitant]
     Active Substance: PANTOPRAZOLE SODIUM
     Dosage: 40 MG DAILY
  3. PERCOCET                           /00446701/ [Concomitant]
     Active Substance: ACETAMINOPHEN\OXYCODONE HYDROCHLORIDE\OXYCODONE TEREPHTHALATE
     Dosage: 5/325 MG TABLET 1-2 TAB PO Q4H PRN
  4. HYDROXYZINE HCL [Concomitant]
     Active Substance: HYDROXYZINE HYDROCHLORIDE
     Dosage: 8 MG, QD
  5. MULTIVITAMIN                       /07504101/ [Concomitant]
     Active Substance: VITAMINS
  6. MORPHINE SULFATE. [Concomitant]
     Active Substance: MORPHINE SULFATE
     Dosage: 15 MG TABLET
  7. JAKAFI [Suspect]
     Active Substance: RUXOLITINIB
     Indication: MYELOFIBROSIS
     Dosage: 15 MG, BID
     Route: 048
     Dates: start: 20150513, end: 20150528
  8. ONDANSETRON [Concomitant]
     Active Substance: ONDANSETRON
     Indication: NAUSEA
     Dosage: 8 MG EVERY 8 HOURS PRN
  9. OXYCODONE [Concomitant]
     Active Substance: OXYCODONE
     Indication: PAIN
     Dosage: 5 TO 10 MG Q 4 HRS PRN
     Dates: start: 2015
  10. ASPIRIN. [Concomitant]
     Active Substance: ASPIRIN
     Dosage: 81 MG DAILY
  11. LOSARTAN [Concomitant]
     Active Substance: LOSARTAN
     Dosage: 50 MG DAILY (HS)
  12. FENTANYL. [Concomitant]
     Active Substance: FENTANYL
     Dosage: 12.5 MCG EVERY 72 HOURS
     Route: 062
  13. TRAMADOL [Concomitant]
     Active Substance: TRAMADOL
     Dosage: 50 MG
  14. MORPHINE SULFATE. [Concomitant]
     Active Substance: MORPHINE SULFATE
     Dosage: 30 MG CPMP 24 HR, 15 MG PO Q12D
  15. PROCHLORPERAZINE MALEATE. [Concomitant]
     Active Substance: PROCHLORPERAZINE MALEATE
     Dosage: 10 MG

REACTIONS (27)
  - Unresponsive to stimuli [Unknown]
  - Abdominal pain [Unknown]
  - Abdominal pain upper [Unknown]
  - Haemodynamic instability [Fatal]
  - Lung infiltration [Unknown]
  - Pulmonary haemorrhage [Unknown]
  - Platelet count decreased [Unknown]
  - Gingival bleeding [Not Recovered/Not Resolved]
  - Multi-organ failure [Unknown]
  - Haematemesis [Unknown]
  - Metabolic encephalopathy [Unknown]
  - Aortic aneurysm [Unknown]
  - Pyrexia [Unknown]
  - Vomiting [Recovered/Resolved]
  - Abdominal compartment syndrome [Fatal]
  - Nausea [Not Recovered/Not Resolved]
  - Acute kidney injury [Fatal]
  - Hypoxia [Unknown]
  - Hypercalcaemia [Unknown]
  - Eructation [Unknown]
  - Musculoskeletal pain [Unknown]
  - Weight decreased [Unknown]
  - Decreased appetite [Unknown]
  - Gastric haemorrhage [Unknown]
  - Sepsis [Unknown]
  - Pain [Unknown]
  - Epistaxis [Unknown]

NARRATIVE: CASE EVENT DATE: 2015
